FAERS Safety Report 7965006-4 (Version None)
Quarter: 2011Q4

REPORT INFORMATION
  Report Type: 
  Country: None (occurrence: None)
  Receive Date: 20111208
  Receipt Date: 20111110
  Transmission Date: 20120403
  Serious: No
  Sender: FDA-Public Use
  Company Number: US-BAYER-2011-109723

PATIENT
  Sex: Female

DRUGS (2)
  1. BEYAZ [Suspect]
  2. YAZ [Suspect]
     Indication: PREMENSTRUAL SYNDROME

REACTIONS (4)
  - AMENORRHOEA [None]
  - MIGRAINE [None]
  - TEMPOROMANDIBULAR JOINT SYNDROME [None]
  - MUSCLE TIGHTNESS [None]
